FAERS Safety Report 21717481 (Version 1)
Quarter: 2022Q4

REPORT INFORMATION
  Report Type: Spontaneous
  Country: US (occurrence: None)
  Receive Date: 20221212
  Receipt Date: 20221212
  Transmission Date: 20230113
  Serious: Yes (Life-Threatening, Hospitalization)
  Sender: FDA-Public Use
  Company Number: None

PATIENT
  Age: 75 Year
  Sex: Male

DRUGS (2)
  1. APIXABAN [Suspect]
     Active Substance: APIXABAN
     Indication: Atrial fibrillation
     Dosage: 5 MG BID PO?
     Route: 048
     Dates: start: 20200123
  2. VERAPAMIL HYDROCHLORIDE [Suspect]
     Active Substance: VERAPAMIL HYDROCHLORIDE
     Indication: Atrial fibrillation
     Dosage: 10 MG BID PO

REACTIONS (7)
  - Rectal haemorrhage [None]
  - Diverticulitis intestinal haemorrhagic [None]
  - Small intestinal haemorrhage [None]
  - Faeces discoloured [None]
  - Haemoglobin decreased [None]
  - Large intestine polyp [None]
  - Diverticulum intestinal [None]

NARRATIVE: CASE EVENT DATE: 20220808
